FAERS Safety Report 15833264 (Version 1)
Quarter: 2019Q1

REPORT INFORMATION
  Report Type: Spontaneous
  Country: US (occurrence: US)
  Receive Date: 20190116
  Receipt Date: 20190116
  Transmission Date: 20190417
  Serious: Yes (Other)
  Sender: FDA-Public Use
  Company Number: US-PFIZER INC-2019020339

PATIENT
  Sex: Female

DRUGS (2)
  1. CRESTOR [Suspect]
     Active Substance: ROSUVASTATIN CALCIUM
     Dosage: UNK
  2. LIPITOR [Suspect]
     Active Substance: ATORVASTATIN CALCIUM
     Dosage: UNK

REACTIONS (8)
  - Carotid artery occlusion [Unknown]
  - Mobility decreased [Unknown]
  - Lung neoplasm malignant [Unknown]
  - Pain [Unknown]
  - Cardiac disorder [Unknown]
  - Pain in extremity [Unknown]
  - Fall [Unknown]
  - Fibromyalgia [Unknown]
